FAERS Safety Report 9930843 (Version 1)
Quarter: 2014Q1

REPORT INFORMATION
  Report Type: Spontaneous
  Country: US (occurrence: US)
  Receive Date: 20140227
  Receipt Date: 20140227
  Transmission Date: 20141002
  Serious: No
  Sender: FDA-Public Use
  Company Number: US-AMGEN-USASP2014003925

PATIENT
  Age: 54 Year
  Sex: Female

DRUGS (3)
  1. ENBREL [Suspect]
     Indication: RHEUMATOID ARTHRITIS
     Dosage: 50 MG, QWK
     Route: 065
     Dates: start: 20131001
  2. METHOTREXATE [Concomitant]
     Dosage: 20 MG, QWK
     Dates: start: 201208
  3. PLAQUENIL                          /00072602/ [Concomitant]
     Dosage: 2 TABS OF 200 MG EACH DAILY
     Dates: start: 201208

REACTIONS (2)
  - Rheumatoid arthritis [Not Recovered/Not Resolved]
  - Musculoskeletal pain [Not Recovered/Not Resolved]
